FAERS Safety Report 9710725 (Version 1)
Quarter: 2013Q4

REPORT INFORMATION
  Report Type: Spontaneous
  Country: US (occurrence: US)
  Receive Date: 20131126
  Receipt Date: 20131126
  Transmission Date: 20140711
  Serious: No
  Sender: FDA-Public Use
  Company Number: US-BRISTOL-MYERS SQUIBB COMPANY-18952762

PATIENT
  Age: 54 Year
  Sex: Female
  Weight: 141.04 kg

DRUGS (4)
  1. BYETTA PEN DISPOSABLE [Suspect]
     Indication: TYPE 2 DIABETES MELLITUS
  2. METFORMIN HCL [Suspect]
     Route: 048
  3. INSULIN [Suspect]
     Dosage: 1DF-60UNITS
  4. NPH INSULIN [Suspect]
     Dosage: 1DF-45 UNITS

REACTIONS (1)
  - Blood glucose increased [Not Recovered/Not Resolved]
